FAERS Safety Report 21800163 (Version 2)
Quarter: 2023Q1

REPORT INFORMATION
  Report Type: Spontaneous
  Country: US (occurrence: US)
  Receive Date: 20221230
  Receipt Date: 20230130
  Transmission Date: 20230417
  Serious: Yes (Other)
  Sender: FDA-Public Use
  Company Number: US-drreddys-SPO/USA/22/0158477

PATIENT
  Age: 74 Year
  Sex: Male

DRUGS (12)
  1. LENALIDOMIDE [Suspect]
     Active Substance: LENALIDOMIDE
     Indication: Plasma cell myeloma
     Dosage: TAKE 1 CAPSULE BY MOUTH ONCE DAILY ON DAYS 1-21 OF EACH 28 DAY CYCLE
     Route: 048
     Dates: start: 20221019, end: 20221116
  2. ATORVASTATIN [Concomitant]
     Active Substance: ATORVASTATIN
     Indication: Product used for unknown indication
  3. DEXAMETHASONE SODIUM PHOSPHATE [Concomitant]
     Active Substance: DEXAMETHASONE SODIUM PHOSPHATE
     Indication: Product used for unknown indication
  4. ONDANSETRON [Concomitant]
     Active Substance: ONDANSETRON
     Indication: Product used for unknown indication
  5. OMEPRAZOLE [Concomitant]
     Active Substance: OMEPRAZOLE
     Indication: Product used for unknown indication
  6. ACYCLOVIR [Concomitant]
     Active Substance: ACYCLOVIR
     Indication: Product used for unknown indication
  7. ALLOPURINOL [Concomitant]
     Active Substance: ALLOPURINOL
     Indication: Product used for unknown indication
  8. ATENOLOL TAB 100MG [Concomitant]
     Indication: Product used for unknown indication
  9. CHLORTHALIDO TAB 25MG [Concomitant]
     Indication: Product used for unknown indication
  10. DOXYCYCLINE TAB 100MG [Concomitant]
     Indication: Product used for unknown indication
  11. LISINOPRIL TAB 40MG [Concomitant]
     Indication: Product used for unknown indication
  12. PROCHLORPERA TAB 10MG [Concomitant]
     Indication: Product used for unknown indication

REACTIONS (7)
  - Neuropathy peripheral [Recovered/Resolved]
  - Diarrhoea [Recovered/Resolved]
  - Night sweats [Recovered/Resolved]
  - Asthenia [Recovered/Resolved]
  - Dyspnoea [Recovered/Resolved]
  - Abdominal discomfort [Not Recovered/Not Resolved]
  - Fatigue [Not Recovered/Not Resolved]
